FAERS Safety Report 24740604 (Version 2)
Quarter: 2024Q4

REPORT INFORMATION
  Report Type: Spontaneous
  Country: US (occurrence: US)
  Receive Date: 20241217
  Receipt Date: 20241219
  Transmission Date: 20250114
  Serious: No
  Sender: BEIGENE
  Company Number: US-BEIGENE-BGN-2024-020345

PATIENT

DRUGS (17)
  1. BRUKINSA [Suspect]
     Active Substance: ZANUBRUTINIB
     Indication: Waldenstrom^s macroglobulinaemia
     Dosage: 80 MILLIGRAM, BID
     Route: 048
  2. BRUKINSA [Suspect]
     Active Substance: ZANUBRUTINIB
     Dosage: 160 MILLIGRAM, BID
     Route: 048
     Dates: start: 20231020
  3. BRUKINSA [Suspect]
     Active Substance: ZANUBRUTINIB
     Dosage: 80 MILLIGRAM, QD
     Route: 048
  4. ROSUVASTATIN [Concomitant]
     Active Substance: ROSUVASTATIN
  5. ACYCLOVIR [Concomitant]
     Active Substance: ACYCLOVIR
  6. TORSEMIDE [Concomitant]
     Active Substance: TORSEMIDE
  7. JARDIANCE [Concomitant]
     Active Substance: EMPAGLIFLOZIN
  8. FLUTICASONE [Concomitant]
     Active Substance: FLUTICASONE
  9. CALCITRIOL [Concomitant]
     Active Substance: CALCITRIOL
  10. MECLIZINE [Concomitant]
     Active Substance: MECLIZINE HYDROCHLORIDE
  11. POTASSIUM CHLORIDE [Concomitant]
     Active Substance: POTASSIUM CHLORIDE
  12. EPLERENONE [Concomitant]
     Active Substance: EPLERENONE
  13. TAMSULOSIN [Concomitant]
     Active Substance: TAMSULOSIN
  14. ALBUTEROL [Concomitant]
     Active Substance: ALBUTEROL
  15. DULOXETINE [Concomitant]
     Active Substance: DULOXETINE
  16. ASPIRIN [Concomitant]
     Active Substance: ASPIRIN
  17. VITAMIN B12 [Concomitant]
     Active Substance: CYANOCOBALAMIN

REACTIONS (1)
  - Skin hyperpigmentation [Unknown]
